FAERS Safety Report 6337370-3 (Version None)
Quarter: 2009Q3

REPORT INFORMATION
  Report Type: 
  Country: None (occurrence: None)
  Receive Date: 20090901
  Receipt Date: 20090901
  Transmission Date: 20100115
  Serious: Yes (Hospitalization)
  Sender: FDA-Public Use
  Company Number: None

PATIENT
  Age: 61 Year
  Sex: Male

DRUGS (2)
  1. SERTRALINE HCL [Suspect]
     Dosage: 100 MG EVERYDAY PO
     Route: 048
     Dates: start: 20090617, end: 20090723
  2. BUPROPION HCL [Suspect]
     Dosage: 150 MG BID PO
     Route: 048
     Dates: start: 20090617, end: 20090723

REACTIONS (4)
  - DELIRIUM [None]
  - HALLUCINATION [None]
  - MUSCLE TWITCHING [None]
  - SEROTONIN SYNDROME [None]
